FAERS Safety Report 7352892-4 (Version None)
Quarter: 2011Q1

REPORT INFORMATION
  Report Type: 
  Country: None (occurrence: None)
  Receive Date: 20110315
  Receipt Date: 20110306
  Transmission Date: 20110831
  Serious: Yes (Other)
  Sender: FDA-Public Use
  Company Number: CA-ROCHE-763837

PATIENT
  Sex: Male

DRUGS (8)
  1. PEGINTERFERON ALFA-2A [Suspect]
     Route: 058
     Dates: start: 20110217
  2. MORPHINE [Concomitant]
     Indication: BACK PAIN
  3. MIRTAZAPINE [Concomitant]
     Dosage: DRUG: SANDOZ-MIRTAZAPINE.
  4. RIBAVIRIN [Suspect]
     Indication: HEPATITIS C
     Route: 065
     Dates: start: 20110217
  5. SERAX [Concomitant]
  6. PEGINTERFERON ALFA-2A [Suspect]
     Indication: HEPATITIS C
     Dosage: MEDICATION ERROR.
     Route: 058
     Dates: start: 20110306
  7. PRILOSEC [Concomitant]
  8. DOMPERIDONE [Concomitant]
     Dosage: DRUG: RATIO-DOMPERIDONE

REACTIONS (6)
  - MASS [None]
  - CONFUSIONAL STATE [None]
  - HEADACHE [None]
  - MEDICATION ERROR [None]
  - INSOMNIA [None]
  - ABNORMAL DREAMS [None]
